FAERS Safety Report 7987858-4 (Version None)
Quarter: 2011Q4

REPORT INFORMATION
  Report Type: 
  Country: None (occurrence: None)
  Receive Date: 20111216
  Receipt Date: 20100820
  Transmission Date: 20120403
  Serious: No
  Sender: FDA-Public Use
  Company Number: US-BRISTOL-MYERS SQUIBB COMPANY-15737166

PATIENT

DRUGS (1)
  1. ABILIFY [Suspect]
     Indication: AUTISM
     Dosage: DOSE INCREASED TO 15MG

REACTIONS (3)
  - AGITATION [None]
  - DYSPHAGIA [None]
  - ORAL DISORDER [None]
